FAERS Safety Report 10831072 (Version 1)
Quarter: 2015Q1

REPORT INFORMATION
  Report Type: Report from Study
  Country: US (occurrence: US)
  Receive Date: 20150219
  Receipt Date: 20150219
  Transmission Date: 20150721
  Serious: No
  Sender: FDA-Public Use
  Company Number: US-ABBVIE-14P-163-1192786-00

PATIENT
  Sex: Male

DRUGS (1)
  1. HUMIRA [Suspect]
     Active Substance: ADALIMUMAB
     Indication: PSORIATIC ARTHROPATHY
     Route: 058

REACTIONS (8)
  - Psoriasis [Unknown]
  - Abasia [Recovered/Resolved]
  - Pain [Recovered/Resolved]
  - Arthritis [Unknown]
  - Stress [Unknown]
  - Rash macular [Unknown]
  - Injection site pain [Unknown]
  - Skin exfoliation [Unknown]
